FAERS Safety Report 6109438-8 (Version None)
Quarter: 2009Q1

REPORT INFORMATION
  Report Type: 
  Country: None (occurrence: None)
  Receive Date: 20090310
  Receipt Date: 20090309
  Transmission Date: 20090719
  Serious: Yes (Other)
  Sender: FDA-Public Use
  Company Number: US-GENENTECH-265697

PATIENT
  Age: 59 Year
  Sex: Female

DRUGS (12)
  1. RITUXIMAB [Suspect]
     Indication: B-CELL LYMPHOMA
     Dosage: 375 MG/M2, UNK
     Route: 042
     Dates: start: 20071107
  2. METHOTREXATE [Suspect]
     Indication: B-CELL LYMPHOMA
     Dosage: 100 MG/M2, UNK
     Route: 042
     Dates: start: 20071108
  3. METHOTREXATE [Suspect]
     Dosage: 400 MG/M2, UNK
     Route: 042
     Dates: start: 20071108
  4. CYTARABINE [Suspect]
     Indication: B-CELL LYMPHOMA
     Dosage: 1 G/M2, UNK
     Route: 042
     Dates: start: 20071109
  5. LEUCOVORIN CALCIUM [Suspect]
     Indication: B-CELL LYMPHOMA
     Dosage: 50 MG, UNK
     Route: 048
  6. LEUCOVORIN CALCIUM [Suspect]
     Dosage: 15 MG, UNK
     Route: 048
  7. FLUCONAZOLE [Concomitant]
     Indication: DRUG USE FOR UNKNOWN INDICATION
  8. VALTREX [Concomitant]
     Indication: DRUG USE FOR UNKNOWN INDICATION
  9. PROTONIX [Concomitant]
     Indication: DRUG USE FOR UNKNOWN INDICATION
  10. PROMETHAZINE [Concomitant]
     Indication: DRUG USE FOR UNKNOWN INDICATION
  11. AMOXICILLIN [Concomitant]
  12. NORVASC [Concomitant]
     Indication: DRUG USE FOR UNKNOWN INDICATION

REACTIONS (2)
  - ALANINE AMINOTRANSFERASE INCREASED [None]
  - ASPARTATE AMINOTRANSFERASE INCREASED [None]
